FAERS Safety Report 4689372-0 (Version None)
Quarter: 2005Q2

REPORT INFORMATION
  Report Type: 
  Country: None (occurrence: None)
  Receive Date: 20050608
  Receipt Date: 20050209
  Transmission Date: 20051028
  Serious: No
  Sender: FDA-Public Use
  Company Number: 2005-BP-01201BP

PATIENT
  Age: 74 Year
  Sex: Male
  Weight: 83.2 kg

DRUGS (2)
  1. SPIRIVA [Suspect]
     Indication: CHRONIC OBSTRUCTIVE PULMONARY DISEASE
     Dosage: NR (18 MCG), NR
  2. ADVAIR DISKUS 100/50 [Concomitant]

REACTIONS (1)
  - BACK PAIN [None]
